FAERS Safety Report 21400452 (Version 1)
Quarter: 2022Q3

REPORT INFORMATION
  Report Type: Spontaneous
  Country: US (occurrence: None)
  Receive Date: 20220930
  Receipt Date: 20220930
  Transmission Date: 20221027
  Serious: No
  Sender: FDA-Public Use
  Company Number: None

PATIENT
  Sex: Male

DRUGS (1)
  1. TREMFYA [Suspect]
     Active Substance: GUSELKUMAB
     Indication: Psoriasis
     Dosage: OTHER FREQUENCY : Q 8WKS;?
     Route: 058
     Dates: start: 202208

REACTIONS (3)
  - Product substitution issue [None]
  - Inability to afford medication [None]
  - Symptom recurrence [None]
